FAERS Safety Report 10563802 (Version 1)
Quarter: 2014Q4

REPORT INFORMATION
  Report Type: Spontaneous
  Country: DE (occurrence: DE)
  Receive Date: 20141104
  Receipt Date: 20141104
  Transmission Date: 20150529
  Serious: Yes (Life-Threatening)
  Sender: FDA-Public Use
  Company Number: DE-BRISTOL-MYERS SQUIBB COMPANY-21547328

PATIENT
  Age: 66 Year
  Sex: Male

DRUGS (1)
  1. ERBITUX [Suspect]
     Active Substance: CETUXIMAB
     Indication: OESOPHAGEAL CARCINOMA
     Route: 042

REACTIONS (4)
  - Off label use [Unknown]
  - Dyspnoea [Unknown]
  - Secretion discharge [Unknown]
  - Flushing [Unknown]

NARRATIVE: CASE EVENT DATE: 20141024
